FAERS Safety Report 9720366 (Version 1)
Quarter: 2013Q4

REPORT INFORMATION
  Report Type: Spontaneous
  Country: US (occurrence: US)
  Receive Date: 20131129
  Receipt Date: 20131129
  Transmission Date: 20140711
  Serious: Yes (Hospitalization, Other)
  Sender: FDA-Public Use
  Company Number: US-JNJFOC-20131112999

PATIENT
  Age: 61 Year
  Sex: Male

DRUGS (1)
  1. BENADRYL [Suspect]
     Indication: PRURITUS
     Route: 048

REACTIONS (5)
  - Suprapubic pain [Unknown]
  - Nephropathy toxic [Unknown]
  - Renal impairment [Unknown]
  - Electrocardiogram change [Unknown]
  - Urinary retention [Unknown]
